FAERS Safety Report 20175297 (Version 1)
Quarter: 2021Q4

REPORT INFORMATION
  Report Type: Spontaneous
  Country: US (occurrence: None)
  Receive Date: 20211210
  Receipt Date: 20211210
  Transmission Date: 20220303
  Serious: Yes (Hospitalization)
  Sender: FDA-Public Use
  Company Number: None

PATIENT
  Age: 67 Year
  Weight: 88.9 kg

DRUGS (2)
  1. OSIMERTINIB [Suspect]
     Active Substance: OSIMERTINIB
     Dosage: FREQUENCY : DAILY;?
     Route: 048
     Dates: start: 20210929
  2. ABEMACICLIB [Suspect]
     Active Substance: ABEMACICLIB
     Dosage: FREQUENCY : TWICE A DAY;?
     Route: 048
     Dates: start: 20210929

REACTIONS (1)
  - Pneumonia [None]

NARRATIVE: CASE EVENT DATE: 20211118
